FAERS Safety Report 6725607-8 (Version None)
Quarter: 2010Q2

REPORT INFORMATION
  Report Type: 
  Country: None (occurrence: None)
  Receive Date: 20100514
  Receipt Date: 20100507
  Transmission Date: 20101027
  Serious: Yes (Hospitalization)
  Sender: FDA-Public Use
  Company Number: DE-JNJFOC-20090706828

PATIENT
  Age: 72 Year
  Sex: Female

DRUGS (23)
  1. TAVANIC [Suspect]
     Indication: URINARY TRACT INFECTION
     Dosage: FILM COATED TABLETS
     Route: 048
  2. LEVOFLOXACIN [Suspect]
     Indication: DRUG USE FOR UNKNOWN INDICATION
     Route: 042
  3. SULTAMICILLIN [Suspect]
     Indication: URINARY TRACT INFECTION
     Route: 042
  4. PANTOZOL [Interacting]
     Indication: PROPHYLAXIS AGAINST GASTROINTESTINAL ULCER
     Route: 048
  5. PIPERACILLIN AND TAZOBACTAM [Suspect]
     Indication: URINARY TRACT INFECTION
     Dosage: 1 DF: 4 G PIPERACILLIN = 0.5 G TAZOBACTAM POWDER
     Route: 042
  6. METRONIDAZOLE [Concomitant]
     Indication: DIARRHOEA
     Route: 048
  7. METRONIDAZOLE [Concomitant]
     Route: 048
  8. ACTRAPID INSULIN [Concomitant]
     Indication: TYPE 2 DIABETES MELLITUS
     Dosage: 3X AFTER VALUE-34 IU (18/6/10)
     Route: 058
  9. ALLOPURINOL [Concomitant]
     Indication: PROPHYLAXIS
     Route: 048
  10. ASPIRIN [Concomitant]
     Indication: ISCHAEMIC HEART DISEASE PROPHYLAXIS
     Route: 048
  11. DIGITOXIN [Concomitant]
     Indication: ATRIAL FIBRILLATION
     Route: 048
  12. FERRO SANOL [Concomitant]
     Indication: ANAEMIA
     Route: 048
  13. FUROSEMIDE [Concomitant]
     Indication: HYPERTENSION
     Route: 048
  14. GABAPENTIN [Concomitant]
     Indication: PHANTOM PAIN
     Route: 048
  15. ISCOVER [Concomitant]
     Indication: MYOCARDIAL INFARCTION
     Route: 048
  16. LEVEMIR [Concomitant]
     Indication: TYPE 2 DIABETES MELLITUS
     Route: 058
  17. METOPROLOL SUCCINATE [Concomitant]
     Indication: HYPERTENSION
     Route: 048
  18. RAMIPRIL [Concomitant]
     Indication: PROPHYLAXIS AGAINST GASTROINTESTINAL ULCER
     Route: 048
  19. RAMIPRIL [Concomitant]
     Indication: HYPERTENSION
     Route: 048
  20. TORASEMIDE [Concomitant]
     Indication: PROPHYLAXIS AGAINST GASTROINTESTINAL ULCER
     Route: 048
  21. TORASEMIDE [Concomitant]
     Indication: HYPERTENSION
     Route: 048
  22. XIPAMIDE [Concomitant]
     Indication: PROPHYLAXIS AGAINST GASTROINTESTINAL ULCER
     Route: 048
  23. XIPAMIDE [Concomitant]
     Indication: HYPERTENSION
     Route: 048

REACTIONS (4)
  - CLOSTRIDIUM DIFFICILE COLITIS [None]
  - DRUG INTERACTION [None]
  - ROTAVIRUS TEST POSITIVE [None]
  - UROSEPSIS [None]
